FAERS Safety Report 8073937-2 (Version None)
Quarter: 2012Q1

REPORT INFORMATION
  Report Type: 
  Country: None (occurrence: None)
  Receive Date: 20120126
  Receipt Date: 20120123
  Transmission Date: 20120608
  Serious: Yes (Other)
  Sender: FDA-Public Use
  Company Number: IE-PFIZER INC-2011183476

PATIENT
  Age: 48 Year
  Sex: Male

DRUGS (2)
  1. EFFEXOR [Concomitant]
     Indication: GENERALISED ANXIETY DISORDER
     Dosage: 225 MG, 1X/DAY
     Route: 048
     Dates: start: 20100101
  2. LYRICA [Suspect]
     Indication: GENERALISED ANXIETY DISORDER
     Dosage: 75 MG, 2X/DAY
     Route: 048
     Dates: start: 20101101, end: 20110501

REACTIONS (5)
  - DRUG ABUSE [None]
  - EUPHORIC MOOD [None]
  - IMPAIRED WORK ABILITY [None]
  - ACTIVITIES OF DAILY LIVING IMPAIRED [None]
  - WITHDRAWAL SYNDROME [None]
